FAERS Safety Report 23259860 (Version 1)
Quarter: 2023Q4

REPORT INFORMATION
  Report Type: Spontaneous
  Country: BE (occurrence: BE)
  Receive Date: 20231204
  Receipt Date: 20231204
  Transmission Date: 20240110
  Serious: Yes (Other)
  Sender: FDA-Public Use
  Company Number: BE-BRISTOL-MYERS SQUIBB COMPANY-2023-170470

PATIENT
  Age: 74 Year

DRUGS (2)
  1. NIVOLUMAB [Suspect]
     Active Substance: NIVOLUMAB
     Indication: Epithelioid mesothelioma
     Dates: end: 202303
  2. IPILIMUMAB [Suspect]
     Active Substance: IPILIMUMAB
     Indication: Epithelioid mesothelioma
     Dates: end: 202303

REACTIONS (5)
  - Autoimmune lung disease [Unknown]
  - Pruritus [Unknown]
  - Parkinsonism [Unknown]
  - Dementia [Unknown]
  - Epithelioid mesothelioma [Unknown]
